FAERS Safety Report 7652178 (Version 5)
Quarter: 2012Q4

REPORT INFORMATION
  Report Type: 
  Country: JP (occurrence: JP)
  Receive Date: 20101101
  Receipt Date: 20121226
  Transmission Date: 20130627
  Serious: Yes (Death, Other)
  Sender: FDA-Public Use
  Company Number: JP-ROCHE-731969

PATIENT
  Age: 52 Year
  Sex: Male
  Weight: 52 kg

DRUGS (13)
  1. AVASTIN [Suspect]
     Indication: LUNG ADENOCARCINOMA METASTATIC
     Dosage: DRUG DISCONTINUED, 15 MG/KG
     Route: 041
     Dates: start: 20100906, end: 20100906
  2. AVASTIN [Suspect]
     Route: 041
     Dates: start: 20100927, end: 20100927
  3. CARBOPLATIN [Concomitant]
     Route: 041
     Dates: start: 20100906, end: 20100906
  4. CARBOPLATIN [Concomitant]
     Route: 041
     Dates: start: 20100927, end: 20100927
  5. PACLITAXEL [Concomitant]
     Route: 041
     Dates: start: 20100906, end: 20100906
  6. PACLITAXEL [Concomitant]
     Route: 041
     Dates: start: 20100927, end: 20100927
  7. MAGMITT [Concomitant]
     Dosage: FORM: PERORAL AGENT
     Route: 048
  8. OXYCONTIN [Concomitant]
     Dosage: FORM: SUSTAINED- RELEASE TABLET
     Route: 048
  9. ORGOTEIN [Concomitant]
     Dosage: FORM: POWDERED MEDICINE, 5 MGX1-2/DAY
     Route: 048
  10. PURSENNID [Concomitant]
     Dosage: FORM: PERORAL AGENT
     Route: 048
  11. TAKEPRON [Concomitant]
     Route: 048
  12. PREDONINE [Concomitant]
     Dosage: 5-15 MG, FORM: PERORAL AGENT
     Route: 048
     Dates: start: 20100906, end: 20100911
  13. NAUZELIN [Concomitant]
     Dosage: FORM: PERORAL AGENT
     Route: 048
     Dates: start: 20100906, end: 20100911

REACTIONS (15)
  - Pulmonary haemorrhage [Fatal]
  - Asphyxia [Fatal]
  - Hyperthermia [Unknown]
  - Oxygen saturation decreased [Unknown]
  - Blood pressure decreased [Unknown]
  - Depressed level of consciousness [Unknown]
  - Mydriasis [Unknown]
  - Respiratory arrest [Unknown]
  - Cardio-respiratory arrest [Unknown]
  - Anaemia [Recovered/Resolved]
  - Chills [Unknown]
  - Febrile neutropenia [Recovered/Resolved]
  - Pneumonia [Recovered/Resolved]
  - Decreased appetite [Unknown]
  - Insomnia [Unknown]
